FAERS Safety Report 9002361 (Version 1)
Quarter: 2013Q1

REPORT INFORMATION
  Report Type: Spontaneous
  Country: US (occurrence: US)
  Receive Date: 20130107
  Receipt Date: 20130107
  Transmission Date: 20140127
  Serious: Yes (Other)
  Sender: FDA-Public Use
  Company Number: US-PFIZER INC-2013002024

PATIENT
  Age: 63 Year
  Sex: Female
  Weight: 59 kg

DRUGS (5)
  1. PREMARIN VAGINAL CREAM [Suspect]
     Indication: VULVOVAGINAL DRYNESS
     Dosage: UNK, 2X\WEEK
     Route: 067
     Dates: start: 20110711, end: 201212
  2. LISINOPRIL W/HYDROCHLOROTHIAZIDE [Concomitant]
     Indication: HYPERTENSION
     Dosage: UNK, 1X/DAY
  3. PAROXETINE [Concomitant]
     Indication: MENOPAUSAL DISORDER
     Dosage: UNK
  4. LOVASTATIN [Concomitant]
     Dosage: UNK, 1X/DAY
  5. NEXIUM [Concomitant]
     Dosage: UNK

REACTIONS (1)
  - Speech disorder [Not Recovered/Not Resolved]
